FAERS Safety Report 5499678-3 (Version None)
Quarter: 2007Q4

REPORT INFORMATION
  Report Type: 
  Country: None (occurrence: None)
  Receive Date: 20071026
  Receipt Date: 20071015
  Transmission Date: 20080405
  Serious: Yes (Hospitalization, Other)
  Sender: FDA-Public Use
  Company Number: US-PFIZER INC-2007081020

PATIENT
  Sex: Female

DRUGS (1)
  1. GEODON [Suspect]

REACTIONS (11)
  - BLOOD PRESSURE INCREASED [None]
  - CARDIAC ANEURYSM [None]
  - CHEST PAIN [None]
  - DILATATION VENTRICULAR [None]
  - ELECTROCARDIOGRAM QT PROLONGED [None]
  - FATIGUE [None]
  - LEFT VENTRICULAR DYSFUNCTION [None]
  - LEFT VENTRICULAR END-DIASTOLIC PRESSURE INCREASED [None]
  - RIGHT VENTRICULAR DYSFUNCTION [None]
  - TORSADE DE POINTES [None]
  - VENTRICULAR HYPOKINESIA [None]
